FAERS Safety Report 9976764 (Version 1)
Quarter: 2014Q1

REPORT INFORMATION
  Report Type: Report from Study
  Country: US (occurrence: US)
  Receive Date: 20140306
  Receipt Date: 20140306
  Transmission Date: 20141002
  Serious: No
  Sender: FDA-Public Use
  Company Number: US-ABBVIE-13P-163-1166824-00

PATIENT
  Sex: Male

DRUGS (6)
  1. HUMIRA [Suspect]
     Indication: PSORIASIS
     Dates: start: 20130828
  2. RYTHMOL [Concomitant]
     Indication: ATRIAL FIBRILLATION
     Dosage: DAILY
  3. NIACIN [Concomitant]
     Indication: BLOOD CHOLESTEROL INCREASED
  4. FERROUS SULFATE [Concomitant]
     Indication: ANAEMIA
     Dosage: DAILY
  5. FLOMAX [Concomitant]
     Indication: PROSTATOMEGALY
     Dosage: DAILY
  6. FINASTERIDE [Concomitant]
     Indication: PROSTATOMEGALY

REACTIONS (1)
  - Pain in jaw [Not Recovered/Not Resolved]
